FAERS Safety Report 8685765 (Version 2)
Quarter: 2012Q4

REPORT INFORMATION
  Report Type: Report from Study
  Country: JP (occurrence: JP)
  Receive Date: 20120726
  Receipt Date: 20120829
  Transmission Date: 20130627
  Serious: Yes (Hospitalization)
  Sender: FDA-Public Use
  Company Number: JP-ROCHE-1044211

PATIENT
  Age: 51 Year
  Sex: Female

DRUGS (20)
  1. ROACTEMRA [Suspect]
     Indication: RHEUMATOID ARTHRITIS
     Route: 041
     Dates: start: 20081106, end: 20090430
  2. ROACTEMRA [Suspect]
     Indication: RHEUMATOID ARTHRITIS
     Route: 041
     Dates: start: 20091112, end: 20091210
  3. METHOTREXATE [Concomitant]
     Indication: RHEUMATOID ARTHRITIS
     Route: 048
     Dates: end: 20091209
  4. METHOTREXATE [Concomitant]
     Indication: RHEUMATOID ARTHRITIS
     Route: 048
     Dates: start: 20091210, end: 20100107
  5. METHOTREXATE [Concomitant]
     Indication: RHEUMATOID ARTHRITIS
     Route: 048
     Dates: start: 20100819, end: 20101105
  6. PREDNISOLONE [Concomitant]
     Indication: POLYMYOSITIS
     Route: 048
     Dates: start: 20081106, end: 20081211
  7. PREDNISOLONE [Concomitant]
     Indication: POLYMYOSITIS
     Route: 048
     Dates: start: 20081212, end: 20090205
  8. PREDNISOLONE [Concomitant]
     Indication: POLYMYOSITIS
     Route: 048
     Dates: start: 20090206, end: 20090402
  9. PREDNISOLONE [Concomitant]
     Indication: POLYMYOSITIS
     Route: 048
     Dates: start: 20090403, end: 2009
  10. PREDNISOLONE [Concomitant]
     Indication: POLYMYOSITIS
     Route: 048
     Dates: start: 2009, end: 20101105
  11. PARIET [Concomitant]
     Indication: PROPHYLAXIS
     Route: 048
  12. BAKTAR [Concomitant]
     Indication: PROPHYLAXIS
     Route: 048
  13. LIPITOR [Concomitant]
     Indication: HYPERLIPIDAEMIA
     Route: 048
  14. PANVITAN [Concomitant]
     Indication: PROPHYLAXIS
     Route: 048
  15. VOLTAREN [Concomitant]
     Indication: RHEUMATOID ARTHRITIS
     Route: 048
  16. LOXONIN [Concomitant]
     Indication: RHEUMATOID ARTHRITIS
     Route: 061
  17. MOHRUS TAPE [Concomitant]
     Indication: RHEUMATOID ARTHRITIS
     Route: 061
  18. FOLIAMIN [Concomitant]
     Indication: PROPHYLAXIS
     Route: 048
     Dates: end: 20100107
  19. SUMILU [Concomitant]
     Indication: RHEUMATOID ARTHRITIS
     Dosage: SUMILU STICK
     Route: 061
  20. CONIEL [Concomitant]
     Indication: HYPERTENSION
     Route: 048

REACTIONS (3)
  - Neoplasm malignant [Recovered/Resolved]
  - Osteoporosis [Unknown]
  - Skin cancer metastatic [Recovered/Resolved]
